FAERS Safety Report 14766104 (Version 1)
Quarter: 2018Q2

REPORT INFORMATION
  Report Type: Report from Study
  Country: US (occurrence: US)
  Receive Date: 20180416
  Receipt Date: 20180416
  Transmission Date: 20180711
  Serious: Yes (Other)
  Sender: FDA-Public Use
  Company Number: US-JAZZ-2018-US-000307

PATIENT
  Sex: Female
  Weight: 90.7 kg

DRUGS (11)
  1. XYREM [Suspect]
     Active Substance: SODIUM OXYBATE
     Indication: NARCOLEPSY
     Dosage: 4.5 G, BID
     Route: 048
     Dates: start: 201209
  2. ETODOLAC. [Concomitant]
     Active Substance: ETODOLAC
  3. ADDERALL [Concomitant]
     Active Substance: AMPHETAMINE ASPARTATE\AMPHETAMINE SULFATE\DEXTROAMPHETAMINE SACCHARATE\DEXTROAMPHETAMINE SULFATE
  4. INDAPAMIDE. [Concomitant]
     Active Substance: INDAPAMIDE
  5. PRENATE DHA [Concomitant]
     Active Substance: .ALPHA.-TOCOPHEROL, DL-\ASCORBIC ACID\CALCIUM CARBONATE\CHOLECALCIFEROL\CYANOCOBALAMIN\DOCONEXENT\FERROUS FUMARATE\FOLIC ACID\MAGNESIUM OXIDE\PYRIDOXINE HYDROCHLORIDE
  6. SALBUTAMOL [Concomitant]
     Active Substance: ALBUTEROL
  7. SERTRALINE HCL [Concomitant]
     Active Substance: SERTRALINE HYDROCHLORIDE
  8. XYREM [Suspect]
     Active Substance: SODIUM OXYBATE
     Indication: CATAPLEXY
     Dosage: 2.25 G, QD
     Route: 048
     Dates: start: 201704, end: 20171228
  9. FLOVENT [Concomitant]
     Active Substance: FLUTICASONE PROPIONATE
  10. TRILEPTAL [Concomitant]
     Active Substance: OXCARBAZEPINE
  11. TRAMADOL HCL [Concomitant]
     Active Substance: TRAMADOL HYDROCHLORIDE

REACTIONS (7)
  - Therapeutic response unexpected [Unknown]
  - Exposure during pregnancy [Unknown]
  - Swelling [Unknown]
  - Hypotension [Unknown]
  - Pre-existing condition improved [Unknown]
  - Migraine [Recovered/Resolved]
  - Complication of pregnancy [Recovered/Resolved]

NARRATIVE: CASE EVENT DATE: 2017
